FAERS Safety Report 7872039 (Version 6)
Quarter: 2012Q4

REPORT INFORMATION
  Report Type: Report from Study
  Country: ES (occurrence: ES)
  Receive Date: 20110325
  Receipt Date: 20121121
  Transmission Date: 20130627
  Serious: Yes (Death, Hospitalization)
  Sender: FDA-Public Use
  Company Number: ES-ABBOTT-11P-144-0712672-00

PATIENT
  Age: 50 Year
  Sex: Female
  Weight: 56 kg

DRUGS (4)
  1. HUMIRA [Suspect]
     Indication: CROHN^S DISEASE
     Route: 058
     Dates: start: 20090706, end: 20090706
  2. HUMIRA [Suspect]
     Route: 058
     Dates: start: 200907, end: 200907
  3. HUMIRA [Suspect]
     Route: 058
     Dates: end: 20110301
  4. PREDNISONE [Concomitant]
     Indication: CROHN^S DISEASE
     Dosage: HIGHEST DOSE 40 MG

REACTIONS (1)
  - Metastases to bone [Fatal]
